FAERS Safety Report 15253158 (Version 1)
Quarter: 2018Q3

REPORT INFORMATION
  Report Type: Spontaneous
  Country: US (occurrence: US)
  Receive Date: 20180807
  Receipt Date: 20180807
  Transmission Date: 20181010
  Serious: No
  Sender: FDA-Public Use
  Company Number: US-RADIUS HEALTH INC.-2018US001600

PATIENT
  Sex: Female
  Weight: 48.53 kg

DRUGS (1)
  1. TYMLOS [Suspect]
     Active Substance: ABALOPARATIDE
     Indication: OSTEOPOROSIS POSTMENOPAUSAL
     Dosage: UNK
     Dates: start: 20180101

REACTIONS (6)
  - Kyphosis [Unknown]
  - Weight increased [Unknown]
  - Body height decreased [Unknown]
  - Drug dose omission [Unknown]
  - Memory impairment [Unknown]
  - Fibromyalgia [Unknown]
